FAERS Safety Report 22118220 (Version 11)
Quarter: 2024Q1

REPORT INFORMATION
  Report Type: Spontaneous
  Country: JP (occurrence: JP)
  Receive Date: 20230321
  Receipt Date: 20240221
  Transmission Date: 20240409
  Serious: Yes (Hospitalization, Other)
  Sender: FDA-Public Use
  Company Number: JP-MSD-M2023-10489

PATIENT
  Age: 77 Year
  Sex: Male

DRUGS (3)
  1. KEYTRUDA [Suspect]
     Active Substance: PEMBROLIZUMAB
     Indication: Renal cell carcinoma stage IV
     Dosage: 200 MILLIGRAM, Q3W
     Route: 041
     Dates: start: 20230309, end: 202312
  2. LENVATINIB MESYLATE [Suspect]
     Active Substance: LENVATINIB MESYLATE
     Indication: Renal cell carcinoma stage IV
     Dosage: 20 MILLIGRAM, QD
     Route: 048
     Dates: start: 20230309, end: 20230721
  3. LENVATINIB MESYLATE [Suspect]
     Active Substance: LENVATINIB MESYLATE
     Dosage: 14 MILLIGRAM, 5 X PER WEEK
     Route: 048
     Dates: start: 20230907

REACTIONS (7)
  - Immune-mediated hypothyroidism [Recovering/Resolving]
  - Delirium [Recovered/Resolved]
  - Gait disturbance [Recovered/Resolved]
  - Hypercalcaemia [Recovered/Resolved]
  - Hyperthyroidism [Recovering/Resolving]
  - Hepatic function abnormal [Recovered/Resolved]
  - Hypertension [Recovered/Resolved]

NARRATIVE: CASE EVENT DATE: 20230101
